FAERS Safety Report 11990080 (Version 2)
Quarter: 2016Q1

REPORT INFORMATION
  Report Type: Spontaneous
  Country: BR (occurrence: BR)
  Receive Date: 20160202
  Receipt Date: 20160204
  Transmission Date: 20160526
  Serious: Yes (Death)
  Sender: FDA-Public Use
  Company Number: PHHY2016BR010174

PATIENT
  Age: 26 Year
  Sex: Female

DRUGS (2)
  1. PREDNISONE. [Suspect]
     Active Substance: PREDNISONE
     Indication: PRODUCT USED FOR UNKNOWN INDICATION
     Route: 065
  2. CABERGOLINE. [Suspect]
     Active Substance: CABERGOLINE
     Indication: BLOOD PROLACTIN ABNORMAL
     Dosage: 0.5 MG, QD
     Route: 065

REACTIONS (2)
  - Pancreatitis [Fatal]
  - Cushing^s syndrome [Fatal]
